FAERS Safety Report 15155089 (Version 2)
Quarter: 2018Q3

REPORT INFORMATION
  Report Type: Spontaneous
  Country: US (occurrence: US)
  Receive Date: 20180717
  Receipt Date: 20180806
  Transmission Date: 20181010
  Serious: No
  Sender: FDA-Public Use
  Company Number: US-PFIZER INC-2018286237

PATIENT
  Age: 55 Year
  Sex: Female
  Weight: 109.7 kg

DRUGS (2)
  1. LETROZOLE. [Suspect]
     Active Substance: LETROZOLE
     Indication: BREAST CANCER METASTATIC
     Dosage: UNK
  2. IBRANCE [Suspect]
     Active Substance: PALBOCICLIB
     Indication: BREAST CANCER METASTATIC
     Dosage: 125 MG, CYCLIC(21 DAYS, THEN 7 DAYS OFF)
     Route: 048
     Dates: start: 201505, end: 201602

REACTIONS (3)
  - White blood cell count decreased [Recovered/Resolved]
  - Anaemia macrocytic [Recovering/Resolving]
  - Neoplasm progression [Unknown]
